FAERS Safety Report 25738866 (Version 2)
Quarter: 2025Q4

REPORT INFORMATION
  Report Type: Report from Study
  Country: US (occurrence: US)
  Receive Date: 20250829
  Receipt Date: 20251023
  Transmission Date: 20260117
  Serious: No
  Sender: ACADIA PHARMACEUTICALS
  Company Number: US-ACADIA PHARMACEUTICALS INC.-ACA-2025-PIM-009576

PATIENT
  Age: 95 Year
  Sex: Female

DRUGS (19)
  1. NUPLAZID [Suspect]
     Active Substance: PIMAVANSERIN TARTRATE
     Indication: Hallucination
     Dosage: 34 MILLIGRAM, QD
     Route: 048
     Dates: start: 20250423
  2. NUPLAZID [Suspect]
     Active Substance: PIMAVANSERIN TARTRATE
     Indication: Parkinson^s disease
  3. NUPLAZID [Suspect]
     Active Substance: PIMAVANSERIN TARTRATE
     Indication: Parkinson^s disease psychosis
  4. WARFARIN [Concomitant]
     Active Substance: WARFARIN
  5. CARVEDILOL [Concomitant]
     Active Substance: CARVEDILOL
  6. OMEPRAZOLE [Concomitant]
     Active Substance: OMEPRAZOLE
  7. MYRBETRIQ [Concomitant]
     Active Substance: MIRABEGRON
  8. LEVOTHYROXINE [Concomitant]
     Active Substance: LEVOTHYROXINE
  9. SINEMET [Concomitant]
     Active Substance: CARBIDOPA\LEVODOPA
  10. ESCITALOPRAM [Concomitant]
     Active Substance: ESCITALOPRAM OXALATE
  11. LOSARTAN [Concomitant]
     Active Substance: LOSARTAN
  12. SIMVASTATIN [Concomitant]
     Active Substance: SIMVASTATIN
  13. COLACE [Concomitant]
     Active Substance: DOCUSATE SODIUM
  14. FIBER THERAPY (CALCIUM POLYCARBOPHIL) [Concomitant]
     Active Substance: CALCIUM POLYCARBOPHIL
  15. MIRALAX [Concomitant]
     Active Substance: POLYETHYLENE GLYCOL 3350
  16. MAGNESIUM GLYCINATE [Concomitant]
     Active Substance: MAGNESIUM GLYCINATE
  17. CHLORTHALIDONE [Concomitant]
     Active Substance: CHLORTHALIDONE
  18. CHLORHEXIDINE [Concomitant]
     Active Substance: CHLORHEXIDINE
  19. DIETARY SUPPLEMENT [Concomitant]
     Active Substance: DIETARY SUPPLEMENT

REACTIONS (9)
  - Discomfort [Unknown]
  - Urinary tract infection [Unknown]
  - Bronchitis [Unknown]
  - Anxiety [Unknown]
  - Dreamy state [Unknown]
  - Poor quality sleep [Unknown]
  - Restlessness [Unknown]
  - Delusion [Unknown]
  - Insomnia [Unknown]

NARRATIVE: CASE EVENT DATE: 20250802
